FAERS Safety Report 20132846 (Version 1)
Quarter: 2021Q4

REPORT INFORMATION
  Report Type: Report from Study
  Country: EG (occurrence: EG)
  Receive Date: 20211130
  Receipt Date: 20211130
  Transmission Date: 20220303
  Serious: Yes (Other)
  Sender: FDA-Public Use
  Company Number: EG-NOVARTISPH-NVSC2021EG267011

PATIENT
  Sex: Male

DRUGS (8)
  1. ENTRESTO [Suspect]
     Active Substance: SACUBITRIL\VALSARTAN
     Indication: Cardiac failure
     Dosage: 50 MG, QD (100 MG HALF TABLET ONCE DAILY)
     Route: 048
     Dates: start: 2019
  2. TORSEMIDE [Concomitant]
     Active Substance: TORSEMIDE
     Indication: Diuretic therapy
     Dosage: 5 MG, QD
     Route: 048
     Dates: start: 2020
  3. CARDIXIN [Concomitant]
     Indication: Cardiac failure
     Dosage: 1 DF, QD (FOR 6 DAYS/WEEK)
     Route: 048
     Dates: start: 202109
  4. MONO-MACK [Concomitant]
     Indication: Vasodilation procedure
     Dosage: 1 DF, BID
     Route: 048
     Dates: start: 2020
  5. ASPIRIN [Concomitant]
     Active Substance: ASPIRIN
     Indication: Anticoagulant therapy
     Dosage: 1 DF, QD
     Route: 048
     Dates: start: 2019
  6. ROSTAR [Concomitant]
     Indication: Prophylaxis
     Dosage: 1 DF, QD
     Route: 048
     Dates: start: 2019
  7. WARFARIN SODIUM [Concomitant]
     Active Substance: WARFARIN SODIUM
     Indication: Anticoagulant therapy
     Dosage: 3 MG, QD (FOR SIX DAYS/WEEK)
     Route: 048
  8. WARFARIN SODIUM [Concomitant]
     Active Substance: WARFARIN SODIUM
     Dosage: 1 MG, QD (FOR THREE DAYS/WEEK)
     Route: 048

REACTIONS (8)
  - Drug ineffective [Not Recovered/Not Resolved]
  - Conduction disorder [Recovered/Resolved]
  - Dyspnoea exertional [Recovered/Resolved]
  - Night sweats [Recovered/Resolved]
  - Prescribed underdose [Not Recovered/Not Resolved]
  - Fatigue [Recovered/Resolved]
  - Ejection fraction decreased [Not Recovered/Not Resolved]
  - Wrong technique in product usage process [Not Recovered/Not Resolved]

NARRATIVE: CASE EVENT DATE: 20190101
